FAERS Safety Report 7714810-6 (Version None)
Quarter: 2011Q3

REPORT INFORMATION
  Report Type: 
  Country: None (occurrence: None)
  Receive Date: 20110822
  Receipt Date: 20110811
  Transmission Date: 20111222
  Serious: Yes (Hospitalization)
  Sender: FDA-Public Use
  Company Number: VER-2011-00647

PATIENT
  Sex: Male

DRUGS (1)
  1. CYCLOSET [Suspect]

REACTIONS (2)
  - PALPITATIONS [None]
  - HYPERHIDROSIS [None]
